FAERS Safety Report 13458982 (Version 2)
Quarter: 2017Q2

REPORT INFORMATION
  Report Type: Report from Study
  Country: US (occurrence: US)
  Receive Date: 20170419
  Receipt Date: 20170509
  Transmission Date: 20170830
  Serious: Yes (Other)
  Sender: FDA-Public Use
  Company Number: PHEH2017US010757

PATIENT
  Sex: Female

DRUGS (2)
  1. COSENTYX [Suspect]
     Active Substance: SECUKINUMAB
     Indication: PSORIATIC ARTHROPATHY
  2. COSENTYX [Suspect]
     Active Substance: SECUKINUMAB
     Indication: PSORIASIS
     Dosage: 2 INJECTIONS PER DOSE FOR 5 WEEKS, THEN 1 INJECTION PER WEEK AFTER THAT
     Route: 065

REACTIONS (3)
  - Skin fissures [Unknown]
  - Abasia [Unknown]
  - Hypersensitivity [Unknown]
